FAERS Safety Report 24573581 (Version 4)
Quarter: 2024Q4

REPORT INFORMATION
  Report Type: Spontaneous
  Country: US (occurrence: US)
  Receive Date: 20241103
  Receipt Date: 20241228
  Transmission Date: 20250114
  Serious: No
  Sender: ELI LILLY AND COMPANY
  Company Number: US-ELI_LILLY_AND_COMPANY-US202410021992

PATIENT
  Age: 64 Year
  Sex: Female

DRUGS (3)
  1. VERZENIO [Suspect]
     Active Substance: ABEMACICLIB
     Indication: Soft tissue sarcoma
     Dosage: 100 MG, BID
     Route: 048
  2. VERZENIO [Suspect]
     Active Substance: ABEMACICLIB
     Indication: Malignant connective tissue neoplasm
     Dosage: 150 MG, UNKNOWN
     Route: 048
  3. VERZENIO [Suspect]
     Active Substance: ABEMACICLIB
     Dosage: 100 MG, BID
     Route: 048

REACTIONS (11)
  - Eczema [Unknown]
  - Gastrooesophageal reflux disease [Unknown]
  - Gingival discomfort [Unknown]
  - Abdominal discomfort [Unknown]
  - Off label use [Unknown]
  - Pruritus [Unknown]
  - Rash erythematous [Unknown]
  - Skin discolouration [Unknown]
  - Fatigue [Unknown]
  - Diarrhoea [Unknown]
  - Stomatitis [Unknown]
